FAERS Safety Report 8596795-6 (Version None)
Quarter: 2012Q3

REPORT INFORMATION
  Report Type: 
  Country: None (occurrence: None)
  Receive Date: 20120815
  Receipt Date: 20120808
  Transmission Date: 20120928
  Serious: Yes (Hospitalization)
  Sender: FDA-Public Use
  Company Number: FR-B.I. PHARMACEUTICALS,INC./RIDGEFIELD-2012-FF-01051FF

PATIENT
  Age: 83 Year
  Sex: Female

DRUGS (3)
  1. MORPHINE SULFATE [Suspect]
     Route: 048
     Dates: start: 20120315, end: 20120326
  2. PRADAXA [Suspect]
     Route: 048
     Dates: start: 20120301, end: 20120329
  3. ACETAMINOPHEN [Suspect]
     Route: 048
     Dates: start: 20120315, end: 20120326

REACTIONS (1)
  - AGRANULOCYTOSIS [None]
